FAERS Safety Report 24566043 (Version 1)
Quarter: 2024Q4

REPORT INFORMATION
  Report Type: Report from Study
  Country: IL (occurrence: IL)
  Receive Date: 20241030
  Receipt Date: 20241030
  Transmission Date: 20250114
  Serious: Yes (Other)
  Sender: AMGEN
  Company Number: IL-AMGEN-ISRSL2024210024

PATIENT
  Sex: Female
  Weight: 63 kg

DRUGS (1)
  1. NPLATE [Suspect]
     Active Substance: ROMIPLOSTIM
     Indication: Immune thrombocytopenia
     Dosage: 2 DOSAGE FORM (2 VIALS), QWK
     Route: 058

REACTIONS (4)
  - Blast cell count increased [Unknown]
  - Platelet count decreased [Unknown]
  - Red cell distribution width increased [Unknown]
  - Myelocyte count increased [Unknown]

NARRATIVE: CASE EVENT DATE: 20241021
